FAERS Safety Report 21680235 (Version 1)
Quarter: 2022Q4

REPORT INFORMATION
  Report Type: Report from Study
  Country: US (occurrence: US)
  Receive Date: 20221205
  Receipt Date: 20221205
  Transmission Date: 20230113
  Serious: No
  Sender: FDA-Public Use
  Company Number: US-ABBVIE-4192295

PATIENT
  Age: 61 Year
  Sex: Female

DRUGS (1)
  1. HUMIRA [Suspect]
     Active Substance: ADALIMUMAB
     Indication: Product used for unknown indication
     Dosage: STRENGTH: 40 MILLIGRAM
     Route: 058
     Dates: start: 2021, end: 20221026

REACTIONS (4)
  - Injection site warmth [Recovered/Resolved]
  - Injection site erythema [Recovered/Resolved]
  - Injection site papule [Recovered/Resolved]
  - Injection site pruritus [Recovered/Resolved]

NARRATIVE: CASE EVENT DATE: 20221026
